FAERS Safety Report 6801155-1 (Version None)
Quarter: 2010Q2

REPORT INFORMATION
  Report Type: 
  Country: None (occurrence: None)
  Receive Date: 20100629
  Receipt Date: 20100624
  Transmission Date: 20101027
  Serious: Yes (Death)
  Sender: FDA-Public Use
  Company Number: CN-PFIZER INC-2010078684

PATIENT

DRUGS (1)
  1. SOLU-MEDROL [Suspect]
     Dosage: UNK

REACTIONS (1)
  - GASTRIC HAEMORRHAGE [None]
